FAERS Safety Report 6262807-8 (Version None)
Quarter: 2009Q3

REPORT INFORMATION
  Report Type: 
  Country: None (occurrence: None)
  Receive Date: 20090709
  Receipt Date: 20090702
  Transmission Date: 20100115
  Serious: Yes (Hospitalization)
  Sender: FDA-Public Use
  Company Number: ES-MERCK-0907ESP00006

PATIENT
  Age: 78 Year

DRUGS (5)
  1. PRINZIDE [Suspect]
     Route: 065
     Dates: start: 20090101
  2. DIGOXIN [Suspect]
     Indication: CARDIAC FAILURE
     Route: 048
     Dates: start: 20090101, end: 20090507
  3. METFORMIN [Suspect]
     Route: 065
     Dates: start: 20090101
  4. FUROSEMIDE [Suspect]
     Route: 065
     Dates: start: 20090101
  5. SPIRONOLACTONE [Suspect]
     Route: 065
     Dates: start: 20090101

REACTIONS (3)
  - BRADYCARDIA [None]
  - DRUG INTERACTION [None]
  - THERAPEUTIC AGENT TOXICITY [None]
